FAERS Safety Report 21232582 (Version 1)
Quarter: 2022Q3

REPORT INFORMATION
  Report Type: Spontaneous
  Country: US (occurrence: None)
  Receive Date: 20220818
  Receipt Date: 20220818
  Transmission Date: 20221027
  Serious: No
  Sender: FDA-Public Use
  Company Number: None

PATIENT
  Sex: Female
  Weight: 62.14 kg

DRUGS (14)
  1. TEMOZOLOMIDE [Suspect]
     Active Substance: TEMOZOLOMIDE
     Indication: Brain neoplasm malignant
     Dosage: OTHER FREQUENCY : DAYS 1-5;?OTHER ROUTE : ORAL-28 DAY CYCLE;?
     Route: 050
     Dates: start: 202201
  2. TEMOZOLOMIDE [Suspect]
     Active Substance: TEMOZOLOMIDE
     Indication: Brain neoplasm malignant
     Dosage: OTHER FREQUENCY : DAYS 1-5;?OTHER ROUTE : ORAL-28 DAY CYCLE;?
     Route: 050
     Dates: start: 202201
  3. ACETAMINOPHEN [Concomitant]
     Active Substance: ACETAMINOPHEN
  4. COVID-19 VACCINE (MRNA) [Concomitant]
  5. ESCITALOPRAM [Concomitant]
  6. FAMOTIDINE [Concomitant]
     Active Substance: FAMOTIDINE
  7. FLUZONE HIGH-DOSE QUADRIVALENT [Concomitant]
     Active Substance: INFLUENZA A VIRUS A/MICHIGAN/45/2015 X-275 (H1N1) ANTIGEN (FORMALDEHYDE INACTIVATED)\INFLUENZA A VIR
  8. FYAVOLV [Concomitant]
     Active Substance: ETHINYL ESTRADIOL\NORETHINDRONE ACETATE
  9. MELATONIN [Concomitant]
     Active Substance: MELATONIN
  10. MIRALAX [Concomitant]
     Active Substance: POLYETHYLENE GLYCOL 3350
  11. MULTIVITAMINS/MINERALS (WITH ADEK, FOLATE, IRON) [Concomitant]
  12. OMEPRAZOLE [Concomitant]
     Active Substance: OMEPRAZOLE
  13. OS-CAL CALCIUM + D3 [Concomitant]
  14. SENNO [Concomitant]

REACTIONS (1)
  - Disease progression [None]
